FAERS Safety Report 8548039-9 (Version None)
Quarter: 2012Q3

REPORT INFORMATION
  Report Type: 
  Country: None (occurrence: None)
  Receive Date: 20120730
  Receipt Date: 20120719
  Transmission Date: 20120928
  Serious: Yes (Hospitalization)
  Sender: FDA-Public Use
  Company Number: CA-ROCHE-1008347

PATIENT
  Sex: Male

DRUGS (5)
  1. SYMBICORT [Concomitant]
  2. SPIRIVA [Concomitant]
  3. VENTOLIN [Concomitant]
  4. XOLAIR [Suspect]
     Indication: ASTHMA
     Route: 058
     Dates: start: 20100211
  5. SINGULAIR [Concomitant]

REACTIONS (7)
  - CARDIAC DISORDER [None]
  - HYPERHIDROSIS [None]
  - HEART RATE IRREGULAR [None]
  - ASTHENIA [None]
  - DYSPNOEA [None]
  - RALES [None]
  - INCREASED BRONCHIAL SECRETION [None]
